FAERS Safety Report 24454620 (Version 2)
Quarter: 2024Q4

REPORT INFORMATION
  Report Type: Report from Study
  Country: US (occurrence: US)
  Receive Date: 20241017
  Receipt Date: 20241018
  Transmission Date: 20250114
  Serious: No
  Sender: ROCHE
  Company Number: US-ROCHE-3470287

PATIENT
  Age: 57 Year
  Sex: Male

DRUGS (1)
  1. RITUXAN [Suspect]
     Active Substance: RITUXIMAB
     Indication: Rheumatoid arthritis
     Dosage: VIAL 50 ML, INFUSE 1000MG INTRAVENOUSLY EVERY 14 DAY(S) FOR 2 DOSES; REPEAT EVERY 6 MONTH(S)
     Route: 041

REACTIONS (1)
  - Breakthrough pain [Unknown]
